FAERS Safety Report 8466765-7 (Version None)
Quarter: 2012Q2

REPORT INFORMATION
  Report Type: 
  Country: None (occurrence: None)
  Receive Date: 20120626
  Receipt Date: 20120613
  Transmission Date: 20120825
  Serious: Yes (Hospitalization, Other)
  Sender: FDA-Public Use
  Company Number: US-BAYER-2012-059169

PATIENT
  Age: 59 Year
  Sex: Male

DRUGS (7)
  1. ASPIRIN [Suspect]
  2. MONTELUKAST [Suspect]
  3. MULTI-VITAMIN [Concomitant]
  4. ASPIRIN [Suspect]
     Indication: IMMUNE TOLERANCE INDUCTION
  5. LOVAZA [Concomitant]
  6. DEHYDROEPIANDROSTERONE [Concomitant]
  7. ASPIRIN [Suspect]

REACTIONS (3)
  - GASTRITIS [None]
  - PANCREATITIS [None]
  - ALLERGIC RESPIRATORY DISEASE [None]
